FAERS Safety Report 7249289-4 (Version None)
Quarter: 2011Q1

REPORT INFORMATION
  Report Type: 
  Country: None (occurrence: None)
  Receive Date: 20110128
  Receipt Date: 20101109
  Transmission Date: 20110831
  Serious: Yes (Hospitalization)
  Sender: FDA-Public Use
  Company Number: US-BAYER-201037987NA

PATIENT
  Sex: Female
  Weight: 68 kg

DRUGS (12)
  1. YASMIN [Suspect]
     Indication: ACNE
     Dosage: UNK
     Dates: start: 20000101, end: 20080101
  2. ASCORBIC ACID [Concomitant]
     Indication: SUPPLEMENTATION THERAPY
     Dosage: UNK UNK, QD
  3. UNCODEABLE ^UNCLASSIFIABLE^ [Concomitant]
     Dosage: UNK UNK, QD
  4. YAZ [Suspect]
     Indication: ACNE
     Dosage: UNK
     Dates: start: 20000101, end: 20080101
  5. YASMIN [Suspect]
     Indication: ORAL CONTRACEPTION
  6. LOVAZA [Concomitant]
     Indication: SUPPLEMENTATION THERAPY
     Dosage: UNK UNK, QD
  7. IUD NOS [Concomitant]
  8. YAZ [Suspect]
     Indication: ORAL CONTRACEPTION
  9. MIRALAX [Concomitant]
     Dosage: UNK UNK, QD
  10. ALEVE [Concomitant]
     Indication: DYSMENORRHOEA
     Dosage: UNK UNK, Q2MON
  11. FLAX SEED OIL [Concomitant]
     Dosage: UNK UNK, QD
  12. VITAMIN D [Concomitant]
     Indication: SUPPLEMENTATION THERAPY
     Dosage: UNK UNK, QD

REACTIONS (7)
  - MUSCULOSKELETAL PAIN [None]
  - PULMONARY EMBOLISM [None]
  - PULMONARY INFARCTION [None]
  - DYSPNOEA [None]
  - NECK PAIN [None]
  - PLEURAL EFFUSION [None]
  - NON-CARDIAC CHEST PAIN [None]
